FAERS Safety Report 6549635-0 (Version None)
Quarter: 2010Q1

REPORT INFORMATION
  Report Type: 
  Country: None (occurrence: None)
  Receive Date: 20100125
  Receipt Date: 20100115
  Transmission Date: 20100710
  Serious: Yes (Other)
  Sender: FDA-Public Use
  Company Number: JP-ABBOTT-10P-087-0619867-00

PATIENT
  Age: 19 Year
  Sex: Male

DRUGS (2)
  1. CYCLOSPORINE [Suspect]
     Indication: MYELODYSPLASTIC SYNDROME
     Dates: start: 19980101
  2. CYCLOSPORINE [Suspect]

REACTIONS (1)
  - FAMILIAL MEDITERRANEAN FEVER [None]
